FAERS Safety Report 7163075-5 (Version None)
Quarter: 2010Q4

REPORT INFORMATION
  Report Type: 
  Country: None (occurrence: None)
  Receive Date: 20101215
  Receipt Date: 20100222
  Transmission Date: 20110411
  Serious: Yes (Hospitalization)
  Sender: FDA-Public Use
  Company Number: FR-PFIZER INC-2010022400

PATIENT
  Age: 31 Year
  Sex: Male

DRUGS (3)
  1. LYRICA [Suspect]
     Dosage: 25 MG, 3X/DAY
     Route: 048
     Dates: start: 20091124
  2. BROMAZEPAM [Suspect]
     Dosage: TOXIC DOSE
     Route: 048
     Dates: end: 20100209
  3. ZOLPIDEM [Suspect]
     Dosage: TOXIC DOSE
     Route: 048
     Dates: end: 20100209

REACTIONS (4)
  - BLOOD CREATINE PHOSPHOKINASE INCREASED [None]
  - CYTOLYTIC HEPATITIS [None]
  - DEPRESSED LEVEL OF CONSCIOUSNESS [None]
  - POISONING DELIBERATE [None]
